FAERS Safety Report 7724327-0 (Version None)
Quarter: 2011Q3

REPORT INFORMATION
  Report Type: 
  Country: None (occurrence: None)
  Receive Date: 20110829
  Receipt Date: 20110812
  Transmission Date: 20111222
  Serious: Yes (Hospitalization, Other)
  Sender: FDA-Public Use
  Company Number: ACO_22489_2010

PATIENT
  Age: 62 Year
  Sex: Female
  Weight: 90 kg

DRUGS (6)
  1. CARBAMAZEPINE [Concomitant]
  2. PROVIGIL [Concomitant]
  3. TRAMADOL HCL [Concomitant]
  4. NEXIUM IV [Concomitant]
  5. AMPYRA [Suspect]
     Indication: MULTIPLE SCLEROSIS
     Dosage: 10 MG, BID, ORAL
     Route: 048
     Dates: start: 20100527
  6. TYSABRI [Concomitant]

REACTIONS (3)
  - FALL [None]
  - ASTHENIA [None]
  - NEUROPATHY PERIPHERAL [None]
